FAERS Safety Report 15813824 (Version 1)
Quarter: 2019Q1

REPORT INFORMATION
  Report Type: Spontaneous
  Country: None (occurrence: US)
  Receive Date: 20190111
  Receipt Date: 20190111
  Transmission Date: 20190417
  Serious: No
  Sender: FDA-Public Use
  Company Number: US-AKRON, INC.-2061111

PATIENT
  Sex: Male

DRUGS (1)
  1. COSOPT PF [Suspect]
     Active Substance: DORZOLAMIDE HYDROCHLORIDE\TIMOLOL MALEATE
     Route: 047

REACTIONS (4)
  - Dry eye [Unknown]
  - Dyspnoea [Unknown]
  - Eye irritation [Unknown]
  - Ocular hyperaemia [Unknown]
